FAERS Safety Report 4337092-4 (Version None)
Quarter: 2004Q1

REPORT INFORMATION
  Report Type: 
  Country: None (occurrence: None)
  Receive Date: 20040329
  Receipt Date: 20031126
  Transmission Date: 20041129
  Serious: No
  Sender: FDA-Public Use
  Company Number: USA031153499

PATIENT
  Age: 53 Year
  Sex: Female
  Weight: 91 kg

DRUGS (3)
  1. STRATTERA [Suspect]
     Indication: ATTENTION DEFICIT/HYPERACTIVITY DISORDER
     Dosage: 25 MG/DAY
     Dates: start: 20031126
  2. PAXIL [Concomitant]
  3. TENORMIN [Concomitant]

REACTIONS (3)
  - DRY MOUTH [None]
  - ENERGY INCREASED [None]
  - SOMNOLENCE [None]
